FAERS Safety Report 16895644 (Version 1)
Quarter: 2019Q4

REPORT INFORMATION
  Report Type: Spontaneous
  Country: US (occurrence: US)
  Receive Date: 20190814
  Receipt Date: 20190814
  Transmission Date: 20200122
  Serious: No
  Sender: FDA-Public Use
  Company Number: None

PATIENT
  Age: 14 Year
  Sex: Male
  Weight: 72 kg

DRUGS (2)
  1. MULTI VITAMIN [Concomitant]
     Active Substance: VITAMINS
  2. KOGENATE FS [Suspect]
     Active Substance: ANTIHEMOPHILIC FACTOR, HUMAN RECOMBINANT
     Indication: FACTOR VIII DEFICIENCY
     Dosage: ?          QUANTITY:9 INJECTION(S);OTHER FREQUENCY:3X/WEEK;OTHER ROUTE:SELF INFUSION VIA IV/ANTECUBITAL?
     Dates: start: 20190701, end: 20190718

REACTIONS (6)
  - Wrong product administered [None]
  - Incorrect dose administered [None]
  - Product packaging issue [None]
  - Expired product administered [None]
  - Product dispensing error [None]
  - Product quality issue [None]

NARRATIVE: CASE EVENT DATE: 20190801
